FAERS Safety Report 17952975 (Version 1)
Quarter: 2020Q2

REPORT INFORMATION
  Report Type: Spontaneous
  Country: US (occurrence: US)
  Receive Date: 20200627
  Receipt Date: 20200627
  Transmission Date: 20200714
  Serious: No
  Sender: FDA-Public Use
  Company Number: US-ASTRAZENECA-2020SE77923

PATIENT
  Sex: Female
  Weight: 77.1 kg

DRUGS (3)
  1. MONTELUKAST [Concomitant]
     Active Substance: MONTELUKAST SODIUM
     Indication: ASTHMA
  2. LORATADINE. [Concomitant]
     Active Substance: LORATADINE
     Indication: ASTHMA
  3. PULMICORT FLEXHALER [Suspect]
     Active Substance: BUDESONIDE
     Indication: ASTHMA
     Dosage: 180MCG, 1 PUFF ONCE DAILY.
     Route: 055

REACTIONS (4)
  - Incorrect dose administered by product [Unknown]
  - Cough [Unknown]
  - Device issue [Unknown]
  - Speech disorder [Unknown]
